FAERS Safety Report 16699236 (Version 2)
Quarter: 2019Q3

REPORT INFORMATION
  Report Type: Report from Study
  Country: US (occurrence: US)
  Receive Date: 20190813
  Receipt Date: 20190828
  Transmission Date: 20191004
  Serious: Yes (Death, Hospitalization, Other)
  Sender: FDA-Public Use
  Company Number: US-BAUSCH-BL-2019-022808

PATIENT
  Age: 67 Year
  Sex: Male

DRUGS (1)
  1. XIFAXAN [Suspect]
     Active Substance: RIFAXIMIN
     Indication: HEPATIC ENCEPHALOPATHY
     Route: 048

REACTIONS (7)
  - Liver disorder [Unknown]
  - Liver transplant [Unknown]
  - Pancreas transplant [Unknown]
  - Gastrointestinal disorder [Unknown]
  - Intestinal transplant [Unknown]
  - Cerebrovascular accident [Fatal]
  - Pancreatic disorder [Unknown]

NARRATIVE: CASE EVENT DATE: 201908
